FAERS Safety Report 7271984-1 (Version None)
Quarter: 2010Q4

REPORT INFORMATION
  Report Type: 
  Country: None (occurrence: None)
  Receive Date: 20101130
  Receipt Date: 20100428
  Transmission Date: 20110411
  Serious: Yes (Hospitalization, Other)
  Sender: FDA-Public Use
  Company Number: 2009SP036859

PATIENT
  Age: 35 Year
  Sex: Female
  Weight: 104.3273 kg

DRUGS (3)
  1. NUVARING [Suspect]
     Indication: CONTRACEPTION
     Dosage: QM; VAG
     Route: 067
     Dates: start: 20050720, end: 20071101
  2. FAMOTIDINE [Concomitant]
  3. IBUPROFEN [Concomitant]

REACTIONS (10)
  - BLOOD PRESSURE INCREASED [None]
  - CELLULITIS [None]
  - DEEP VEIN THROMBOSIS [None]
  - DYSURIA [None]
  - HYPERSENSITIVITY [None]
  - OTITIS EXTERNA [None]
  - OTITIS MEDIA [None]
  - PARAESTHESIA [None]
  - PULMONARY EMBOLISM [None]
  - THROMBOSIS [None]
